FAERS Safety Report 13072021 (Version 2)
Quarter: 2016Q4

REPORT INFORMATION
  Report Type: Spontaneous
  Country: AT (occurrence: AT)
  Receive Date: 20161229
  Receipt Date: 20161230
  Transmission Date: 20170207
  Serious: Yes (Life-Threatening)
  Sender: FDA-Public Use
  Company Number: AT-PFIZER INC-2016600189

PATIENT
  Age: 69 Year
  Sex: Female

DRUGS (3)
  1. NOVALGIN [Concomitant]
     Active Substance: METAMIZOLE SODIUM
     Dosage: 1 G, UNK
     Route: 042
  2. LOVENOX [Concomitant]
     Active Substance: ENOXAPARIN SODIUM
     Dosage: UNK
  3. UNASYN [Suspect]
     Active Substance: AMPICILLIN SODIUM\SULBACTAM SODIUM
     Dosage: 1 DF, SINGLE
     Route: 042
     Dates: start: 20161221, end: 20161221

REACTIONS (2)
  - Rash generalised [Not Recovered/Not Resolved]
  - Anaphylactoid shock [Not Recovered/Not Resolved]

NARRATIVE: CASE EVENT DATE: 201612
